FAERS Safety Report 7759685-4 (Version None)
Quarter: 2011Q3

REPORT INFORMATION
  Report Type: 
  Country: None (occurrence: None)
  Receive Date: 20110919
  Receipt Date: 20110909
  Transmission Date: 20111222
  Serious: Yes (Death, Other)
  Sender: FDA-Public Use
  Company Number: JP-CELGENEUS-087-50794-11071321

PATIENT
  Age: 71 Year
  Sex: Male
  Weight: 54 kg

DRUGS (41)
  1. GRANISETRON HYDROCHLORIDE [Concomitant]
     Dosage: 3 MILLIGRAM
     Route: 041
     Dates: start: 20110617, end: 20110623
  2. AXIZON [Concomitant]
     Dosage: 100 MILLIGRAM
     Route: 041
     Dates: start: 20110628, end: 20110628
  3. LASIX [Concomitant]
     Dosage: 40 MILLIGRAM
     Route: 041
     Dates: start: 20110702, end: 20110704
  4. PREDNISOLONE [Concomitant]
     Dosage: 20 MILLIGRAM
     Route: 065
     Dates: start: 20110704, end: 20110706
  5. ZOSYN [Concomitant]
     Dosage: 13.5 GRAM
     Route: 065
     Dates: start: 20110705, end: 20110706
  6. PURSENNID [Concomitant]
     Dosage: 10 MILLIGRAM
     Route: 048
     Dates: start: 20110616, end: 20110701
  7. FIRSTCIN [Concomitant]
     Dosage: 4 GRAM
     Route: 041
     Dates: start: 20110614, end: 20110630
  8. FLURBIPROFEN [Concomitant]
     Dosage: 50 MILLIGRAM
     Route: 065
     Dates: start: 20110626, end: 20110626
  9. LASIX [Concomitant]
     Dosage: 10 MILLIGRAM
     Route: 041
     Dates: start: 20110705, end: 20110705
  10. PHENYTOIN SODIUM CAP [Concomitant]
     Dosage: 125 MILLIGRAM
     Route: 065
     Dates: start: 20110703, end: 20110703
  11. DOBUTAMINE HYDROCHLORIDE [Concomitant]
     Dosage: 150 MILLIGRAM
     Route: 065
     Dates: start: 20110705, end: 20110705
  12. ADEFURONIC [Concomitant]
     Dosage: 75 MILLIGRAM
     Route: 048
     Dates: start: 20110616, end: 20110701
  13. AXIZON [Concomitant]
     Dosage: 100 MILLIGRAM
     Route: 041
     Dates: start: 20110703, end: 20110703
  14. SULFAMETHOXAZOLE [Concomitant]
     Dosage: 1 DF
     Route: 048
     Dates: start: 20110616, end: 20110628
  15. METHYLPREDNISOLONE SODIUM SUCCINATE [Concomitant]
     Dosage: 1000 MILLIGRAM
     Route: 065
     Dates: start: 20110703, end: 20110703
  16. DIFLUCAN [Concomitant]
     Dosage: 200 MILLIGRAM
     Route: 048
     Dates: start: 20110616, end: 20110628
  17. MAGNESIUM OXIDE [Concomitant]
     Dosage: 990 MILLIGRAM
     Route: 048
     Dates: start: 20110616, end: 20110701
  18. OXYCODONE HCL [Concomitant]
     Dosage: 2.5 MILLIGRAM
     Route: 048
     Dates: start: 20110624, end: 20110701
  19. AMIKACIN SULFATE [Concomitant]
     Dosage: 400 MILLIGRAM
     Route: 041
     Dates: start: 20110620, end: 20110703
  20. FUNGUARD [Concomitant]
     Dosage: 400 MILLIGRAM
     Route: 041
     Dates: start: 20110620, end: 20110703
  21. FLURBIPROFEN [Concomitant]
     Dosage: 50 MILLIGRAM
     Route: 065
     Dates: start: 20110628, end: 20110628
  22. DORIPENEM MONOHYDRATE [Concomitant]
     Dosage: 1.5 GRAM
     Route: 065
     Dates: start: 20110630, end: 20110704
  23. CHLOR-TRIMETON [Concomitant]
     Dosage: 10 MILLIGRAM
     Route: 041
     Dates: start: 20110701, end: 20110701
  24. VANCOMYCIN [Concomitant]
     Dosage: .5 GRAM
     Route: 065
     Dates: start: 20110704, end: 20110704
  25. MUCOSTA [Concomitant]
     Dosage: 300 MILLIGRAM
     Route: 048
     Dates: start: 20110616, end: 20110628
  26. PROCHLORPERAZINE [Concomitant]
     Dosage: 15 MILLIGRAM
     Route: 048
     Dates: start: 20110624, end: 20110701
  27. FENTANYL CITRATE [Concomitant]
     Route: 065
     Dates: start: 20110703, end: 20110705
  28. PANTOL [Concomitant]
     Dosage: 2000 MILLIGRAM
     Route: 065
     Dates: start: 20110704, end: 20110704
  29. CIPROFLOXACIN HCL [Concomitant]
     Dosage: 6000 MILLIGRAM
     Route: 065
     Dates: start: 20110705, end: 20110706
  30. VIDAZA [Suspect]
     Indication: MYELODYSPLASTIC SYNDROME
     Dosage: 100 MILLIGRAM
     Route: 058
     Dates: start: 20110617, end: 20110623
  31. ITRACONAZOLE [Concomitant]
     Route: 065
  32. GRAN [Concomitant]
     Dosage: 75 MICROGRAM
     Route: 058
     Dates: start: 20110625, end: 20110706
  33. CHLOR-TRIMETON [Concomitant]
     Dosage: 10 MILLIGRAM
     Route: 041
     Dates: start: 20110703, end: 20110706
  34. CATABON [Concomitant]
     Dosage: 200 MILLILITER
     Route: 041
     Dates: start: 20110704, end: 20110705
  35. SCOPOLAMINE [Concomitant]
     Dosage: 10 MILLIGRAM
     Route: 048
     Dates: start: 20110617, end: 20110702
  36. TRANSFUSION [Concomitant]
     Route: 041
  37. OMEPRAZOLE [Concomitant]
     Dosage: 20 MILLIGRAM
     Route: 048
     Dates: start: 20110616, end: 20110628
  38. ACETAMINOPHEN [Concomitant]
     Dosage: 400 MILLIGRAM
     Route: 048
     Dates: start: 20110616, end: 20110627
  39. FENTANYL CITRATE [Concomitant]
     Dosage: .2 MILLIGRAM
     Route: 065
     Dates: start: 20110706, end: 20110706
  40. AMBISOME [Concomitant]
     Dosage: 150 MILLIGRAM
     Route: 065
     Dates: start: 20110701, end: 20110706
  41. CATABON [Concomitant]
     Dosage: 200 MILLILITER
     Route: 041
     Dates: start: 20110702, end: 20110702

REACTIONS (4)
  - INFECTION [None]
  - HEPATIC FAILURE [None]
  - RENAL IMPAIRMENT [None]
  - AGRANULOCYTOSIS [None]
